FAERS Safety Report 10516914 (Version 1)
Quarter: 2014Q4

REPORT INFORMATION
  Report Type: Spontaneous
  Country: US (occurrence: None)
  Receive Date: 20141003
  Receipt Date: 20141003
  Transmission Date: 20150528
  Serious: Yes (Hospitalization)
  Sender: FDA-Public Use
  Company Number: 1385525

PATIENT
  Age: 55 Year
  Sex: Male
  Weight: 135.63 kg

DRUGS (22)
  1. PAROXETINE [Concomitant]
     Active Substance: PAROXETINE\PAROXETINE HYDROCHLORIDE
  2. SERTRALINE [Concomitant]
     Active Substance: SERTRALINE HYDROCHLORIDE
  3. ASPIRIN. [Concomitant]
     Active Substance: ASPIRIN
  4. SYMBICORT(BUDESONIDE, FORMOTEROL FUMARATE) [Concomitant]
  5. GABAPENTIN. [Concomitant]
     Active Substance: GABAPENTIN
  6. METOPROLOL TARTRATE. [Concomitant]
     Active Substance: METOPROLOL TARTRATE
  7. VENTOLIN(SALBUTAMOL SULFATE) [Concomitant]
  8. HYDROCHLOROTHIAIZDE [Concomitant]
  9. PEGASYS [Suspect]
     Active Substance: PEGINTERFERON ALFA-2A
     Indication: HEPATITIS C
     Dosage: 600 MG-AM; 800 MG-PM (
     Route: 058
     Dates: start: 20140321
  10. LISINOPRIL(LISINOPRIL) [Concomitant]
     Active Substance: LISINOPRIL
  11. OMEPRAZOLE(OMEPRAZOLE) [Concomitant]
     Active Substance: OMEPRAZOLE
  12. HYDROXYZINE(HYDROXYZINE) [Concomitant]
  13. VICODIN(HYDROCODONE TARTRATE) [Concomitant]
  14. PANTOPRAZOLE(PANTOPRAZOLE) [Concomitant]
  15. AMLODIPINE [Concomitant]
     Active Substance: AMLODIPINE BESYLATE
  16. RIBASPHERE [Suspect]
     Active Substance: RIBAVIRIN
     Indication: HEPATITIS C
     Dosage: 600MG-AM;800 MG-PM(2 IN 1D) PO
     Route: 048
     Dates: start: 20140321
  17. FAMOTIDINE(FAMOTIDINE) [Concomitant]
  18. ABILIFY(ARIPRAZOLE) [Concomitant]
  19. SOVALDI [Suspect]
     Active Substance: SOFOSBUVIR
     Indication: HEPATITIS C
     Route: 048
     Dates: start: 20140321
  20. ALBUTEROL(SALBUTAMOL) [Concomitant]
  21. ZOLPIDEM [Concomitant]
     Active Substance: ZOLPIDEM\ZOLPIDEM TARTRATE
  22. METHOCARBAMOL. [Concomitant]
     Active Substance: METHOCARBAMOL

REACTIONS (1)
  - Fatigue [None]

NARRATIVE: CASE EVENT DATE: 20140512
